FAERS Safety Report 15843370 (Version 1)
Quarter: 2019Q1

REPORT INFORMATION
  Report Type: Spontaneous
  Country: US (occurrence: US)
  Receive Date: 20190118
  Receipt Date: 20190118
  Transmission Date: 20190417
  Serious: No
  Sender: FDA-Public Use
  Company Number: US-GENUS_LIFESCIENCES-USA-POI0580201800110

PATIENT
  Sex: Female

DRUGS (7)
  1. LEVOTHYROXINE. [Concomitant]
     Active Substance: LEVOTHYROXINE
     Indication: HYPOTHYROIDISM
  2. RANITIDINE. [Concomitant]
     Active Substance: RANITIDINE
     Indication: ABDOMINAL DISCOMFORT
  3. POTASSIUM CHLORIDE ORAL SOLUTION [Suspect]
     Active Substance: POTASSIUM CHLORIDE
     Indication: FAMILIAL PERIODIC PARALYSIS
     Dates: start: 2016
  4. POTASSIUM CHLORIDE. [Concomitant]
     Active Substance: POTASSIUM CHLORIDE
     Indication: FAMILIAL PERIODIC PARALYSIS
  5. RANITIDINE. [Concomitant]
     Active Substance: RANITIDINE
     Indication: NAUSEA
     Dates: start: 2016
  6. ACETAZOLAMIDE. [Concomitant]
     Active Substance: ACETAZOLAMIDE
     Indication: FAMILIAL PERIODIC PARALYSIS
  7. VITAMIN D [Concomitant]
     Active Substance: CHOLECALCIFEROL
     Indication: VITAMIN D DEFICIENCY

REACTIONS (2)
  - Nausea [Not Recovered/Not Resolved]
  - Abdominal discomfort [Not Recovered/Not Resolved]

NARRATIVE: CASE EVENT DATE: 2016
